FAERS Safety Report 16927211 (Version 1)
Quarter: 2019Q4

REPORT INFORMATION
  Report Type: Report from Study
  Country: NL (occurrence: NL)
  Receive Date: 20191016
  Receipt Date: 20191016
  Transmission Date: 20200122
  Serious: Yes (Death)
  Sender: FDA-Public Use
  Company Number: NVSC2019NL004683

PATIENT
  Sex: Female

DRUGS (1)
  1. SANDOSTATIN LAR DEPOT [Suspect]
     Active Substance: OCTREOTIDE ACETATE
     Indication: ILEOSTOMY
     Dosage: 20 MG/2 ML, QMO (EVERY 4 WEEKS)
     Route: 030

REACTIONS (2)
  - Death [Fatal]
  - Product use in unapproved indication [Unknown]
